FAERS Safety Report 14199350 (Version 2)
Quarter: 2017Q4

REPORT INFORMATION
  Report Type: Spontaneous
  Country: US (occurrence: US)
  Receive Date: 20171117
  Receipt Date: 20171206
  Transmission Date: 20180321
  Serious: Yes (Hospitalization, Other)
  Sender: FDA-Public Use
  Company Number: US-MALLINCKRODT-T201704527

PATIENT
  Age: 68 Year
  Sex: Female
  Weight: 63 kg

DRUGS (3)
  1. FENTANYL TRANSDERMAL SYSTEM [Suspect]
     Active Substance: FENTANYL
     Indication: PAIN
     Dosage: 50 MCG/HR EVERY 3 DAYS
     Route: 062
  2. FENTANYL TRANSDERMAL SYSTEM [Suspect]
     Active Substance: FENTANYL
     Indication: OSTEOPOROSIS
     Dosage: 25 MCG
     Route: 062
  3. FENTANYL TRANSDERMAL SYSTEM [Suspect]
     Active Substance: FENTANYL
     Indication: FIBROMYALGIA

REACTIONS (14)
  - Bradycardia [Unknown]
  - Drug dispensing error [Unknown]
  - Urinary incontinence [Unknown]
  - Anal incontinence [Unknown]
  - Loss of consciousness [Unknown]
  - Renal failure [Unknown]
  - Respiratory failure [Unknown]
  - Weight decreased [Unknown]
  - Product packaging issue [Unknown]
  - Cardiac failure [Unknown]
  - Apparent death [Unknown]
  - Gait disturbance [Unknown]
  - Dizziness [Unknown]
  - Hyperhidrosis [Unknown]

NARRATIVE: CASE EVENT DATE: 20170923
